FAERS Safety Report 14128445 (Version 2)
Quarter: 2017Q4

REPORT INFORMATION
  Report Type: Spontaneous
  Country: US (occurrence: US)
  Receive Date: 20171026
  Receipt Date: 20171103
  Transmission Date: 20180321
  Serious: No
  Sender: FDA-Public Use
  Company Number: US-HORIZON-VIM-0137-2017

PATIENT
  Age: 66 Year
  Sex: Female

DRUGS (1)
  1. VIMOVO [Suspect]
     Active Substance: ESOMEPRAZOLE MAGNESIUM\NAPROXEN
     Indication: PRODUCT USED FOR UNKNOWN INDICATION
     Dosage: PATIENT TOOK 1 TABLET
     Route: 048
     Dates: start: 20171019, end: 20171019

REACTIONS (2)
  - Nausea [Recovered/Resolved]
  - Abdominal discomfort [Recovered/Resolved]

NARRATIVE: CASE EVENT DATE: 20171019
